FAERS Safety Report 9608325 (Version 1)
Quarter: 2013Q4

REPORT INFORMATION
  Report Type: Spontaneous
  Country: FR (occurrence: FR)
  Receive Date: 20131009
  Receipt Date: 20131009
  Transmission Date: 20140711
  Serious: Yes (Hospitalization)
  Sender: FDA-Public Use
  Company Number: FR-SA-2013SA099284

PATIENT
  Age: 81 Year
  Sex: Female

DRUGS (5)
  1. PERINDOPRIL [Suspect]
     Indication: CARDIAC FAILURE
     Route: 048
     Dates: end: 20121205
  2. LASILIX [Suspect]
     Indication: CARDIAC FAILURE
     Route: 048
  3. BISOPROLOL FUMARATE [Suspect]
     Indication: CARDIAC FAILURE
     Dosage: STRENGTH: 10 MG
     Route: 048
  4. HEMIGOXINE NATIVELLE [Suspect]
     Indication: CARDIAC FAILURE
     Route: 048
     Dates: end: 20121205
  5. ZANIDIP [Suspect]
     Indication: PRODUCT USED FOR UNKNOWN INDICATION
     Dosage: STRENGTH: 20 MG
     Route: 048

REACTIONS (3)
  - Renal failure acute [Recovered/Resolved]
  - Blood creatinine increased [Recovered/Resolved]
  - Hyperkalaemia [Recovered/Resolved]
